FAERS Safety Report 7272914-9 (Version None)
Quarter: 2011Q1

REPORT INFORMATION
  Report Type: 
  Country: None (occurrence: None)
  Receive Date: 20110203
  Receipt Date: 20101208
  Transmission Date: 20110831
  Serious: No
  Sender: FDA-Public Use
  Company Number: US-BAYER-2011-002035

PATIENT
  Sex: Female
  Weight: 113 kg

DRUGS (2)
  1. ALEVE (CAPLET) [Suspect]
     Indication: HEADACHE
     Dosage: DAILY DOSE 3 DF
     Route: 048
     Dates: start: 20100101
  2. MAXALT [Concomitant]
     Indication: MIGRAINE

REACTIONS (4)
  - URTICARIA [None]
  - PRURITUS [None]
  - CHEST DISCOMFORT [None]
  - SENSATION OF FOREIGN BODY [None]
